FAERS Safety Report 7186474-4 (Version None)
Quarter: 2010Q4

REPORT INFORMATION
  Report Type: 
  Country: None (occurrence: None)
  Receive Date: 20101222
  Receipt Date: 20101220
  Transmission Date: 20110411
  Serious: Yes (Other)
  Sender: FDA-Public Use
  Company Number: US-PFIZER INC-2010176055

PATIENT
  Sex: Female
  Weight: 61.224 kg

DRUGS (3)
  1. GEODON [Suspect]
     Indication: BIPOLAR DISORDER
     Dosage: 80 MG, 1X/DAY
     Route: 048
     Dates: start: 20080101
  2. GEODON [Suspect]
     Dosage: 60 MG, DAILY
     Route: 048
  3. COGENTIN [Suspect]
     Indication: TREMOR
     Dosage: UNK
     Dates: start: 20101217, end: 20101219

REACTIONS (5)
  - DIZZINESS [None]
  - DYSKINESIA [None]
  - TARDIVE DYSKINESIA [None]
  - TREMOR [None]
  - VISION BLURRED [None]
